FAERS Safety Report 6221560-4 (Version None)
Quarter: 2009Q2

REPORT INFORMATION
  Report Type: 
  Country: None (occurrence: None)
  Receive Date: 20090608
  Receipt Date: 20090528
  Transmission Date: 20091009
  Serious: Yes (Other)
  Sender: FDA-Public Use
  Company Number: GXKR2009TR06341

PATIENT
  Age: 40 Year
  Sex: Female

DRUGS (8)
  1. PAROXETINE HCL [Suspect]
     Indication: DEPRESSION
  2. FENTANYL [Suspect]
     Indication: GENERAL ANAESTHESIA
     Dosage: 100 UG, INTRAVENOUS
     Route: 042
  3. THIOPENTAL SODIUM [Concomitant]
  4. VECURONIUM BROMIDE [Concomitant]
  5. SEVOFLURANE [Concomitant]
  6. NEOSTIGMINE (NEOSTIGMINE) [Concomitant]
  7. ATROPINE [Concomitant]
  8. DICLOFENAC (DICLOFENAC) [Concomitant]

REACTIONS (4)
  - DRUG INTERACTION [None]
  - NYSTAGMUS [None]
  - PUPILS UNEQUAL [None]
  - SEROTONIN SYNDROME [None]
